FAERS Safety Report 6001967-0 (Version None)
Quarter: 2008Q4

REPORT INFORMATION
  Report Type: 
  Country: None (occurrence: None)
  Receive Date: 20081212
  Receipt Date: 20081202
  Transmission Date: 20090506
  Serious: Yes (Hospitalization)
  Sender: FDA-Public Use
  Company Number: 2008-04588

PATIENT
  Age: 41 Year
  Sex: Male
  Weight: 91 kg

DRUGS (3)
  1. VELCADE [Suspect]
     Indication: AMYLOIDOSIS
     Dosage: 1 MG/M2,
     Dates: start: 20081122, end: 20081125
  2. MELPHALAN(MELPHALAN) VIAL [Suspect]
     Indication: AMYLOIDOSIS
  3. DEXAMETHASONE TAB [Suspect]
     Indication: AMYLOIDOSIS
     Dosage: 20 MG,
     Dates: start: 20081122, end: 20081126

REACTIONS (2)
  - INTERNATIONAL NORMALISED RATIO INCREASED [None]
  - VISUAL IMPAIRMENT [None]
